FAERS Safety Report 21273869 (Version 1)
Quarter: 2022Q3

REPORT INFORMATION
  Report Type: Spontaneous
  Country: IN (occurrence: IN)
  Receive Date: 20220831
  Receipt Date: 20220831
  Transmission Date: 20221027
  Serious: Yes (Other)
  Sender: FDA-Public Use
  Company Number: IN-SUN PHARMACEUTICAL INDUSTRIES LTD-2022R1-352899

PATIENT
  Sex: Male

DRUGS (3)
  1. NOREPINEPHRINE [Suspect]
     Active Substance: NOREPINEPHRINE
     Indication: Shock
     Dosage: UNK
     Route: 065
  2. TERLIPRESSIN [Suspect]
     Active Substance: TERLIPRESSIN
     Indication: Hepatorenal syndrome
     Dosage: UNK (1 MG THRICE TO FOUR TIMES A DAY)
     Route: 042
  3. TERLIPRESSIN [Suspect]
     Active Substance: TERLIPRESSIN
     Indication: Gastric varices haemorrhage

REACTIONS (1)
  - Dermatitis bullous [Recovered/Resolved]
